FAERS Safety Report 14743090 (Version 1)
Quarter: 2018Q2

REPORT INFORMATION
  Report Type: Spontaneous
  Country: US (occurrence: US)
  Receive Date: 20180410
  Receipt Date: 20180410
  Transmission Date: 20180711
  Serious: No
  Sender: FDA-Public Use
  Company Number: US-SEPTODONT-201703999

PATIENT

DRUGS (4)
  1. LIDOCAINE HYDROCHLORIDE 2% WITH EPINEPHRINE 1:100,000 INJECTION [Suspect]
     Active Substance: EPINEPHRINE\LIDOCAINE HYDROCHLORIDE
     Indication: LOCAL ANAESTHESIA
     Dosage: MORE THAN ONE CARPULE TO GET PATIENTS NUMB
     Route: 004
     Dates: start: 20170421, end: 20170421
  2. LIDOCAINE HYDROCHLORIDE 2% WITH EPINEPHRINE 1:50,000 INJECTION [Suspect]
     Active Substance: EPINEPHRINE\LIDOCAINE HYDROCHLORIDE
     Indication: LOCAL ANAESTHESIA
     Dosage: MORE THAN ONE CARPULE TO GET PATIENTS NUMB
     Route: 004
     Dates: start: 20170421, end: 20170421
  3. LIDOCAINE HYDROCHLORIDE 2% WITH EPINEPHRINE 1:100,000 INJECTION [Suspect]
     Active Substance: EPINEPHRINE\LIDOCAINE HYDROCHLORIDE
     Indication: LOCAL ANAESTHESIA
     Dosage: MORE THAN ONE CARPULE TO GET PATIENTS NUMB
     Route: 004
     Dates: start: 20170421, end: 20170421
  4. LIDOCAINE HYDROCHLORIDE 2% WITH EPINEPHRINE 1:50,000 INJECTION [Suspect]
     Active Substance: EPINEPHRINE\LIDOCAINE HYDROCHLORIDE
     Indication: LOCAL ANAESTHESIA
     Dosage: MORE THAN ONE CARPULE TO GET PATIENTS NUMB
     Route: 004
     Dates: start: 20170421, end: 20170421

REACTIONS (1)
  - Drug ineffective [Recovered/Resolved]
